FAERS Safety Report 11260153 (Version 2)
Quarter: 2015Q3

REPORT INFORMATION
  Report Type: Spontaneous
  Country: JP (occurrence: JP)
  Receive Date: 20150710
  Receipt Date: 20150721
  Transmission Date: 20151125
  Serious: Yes (Hospitalization, Other)
  Sender: FDA-Public Use
  Company Number: JP-PFIZER INC-2015227499

PATIENT
  Age: 33 Year
  Sex: Female

DRUGS (13)
  1. THYRADIN [Concomitant]
     Active Substance: LEVOTHYROXINE
     Dosage: 50 ?G, 1X/DAY
     Route: 048
     Dates: start: 19960904, end: 20090127
  2. SELENICA R [Concomitant]
     Active Substance: VALPROATE SODIUM
     Indication: EPILEPSY
     Dosage: 400 MG, 1X/DAY
     Route: 048
     Dates: start: 19970326
  3. DESMOPRESSIN [Concomitant]
     Active Substance: DESMOPRESSIN
     Indication: DIABETES INSIPIDUS
     Dosage: 0.06 ML, 2X/DAY
     Route: 045
     Dates: start: 19960413
  4. GENOTROPIN GOQUICK [Suspect]
     Active Substance: SOMATROPIN
     Dosage: 0.5 MG, UNK
     Route: 058
     Dates: start: 20110105, end: 20150607
  5. PREMARIN [Suspect]
     Active Substance: ESTROGENS, CONJUGATED
     Indication: AMENORRHOEA
     Dosage: 1.25 MG, 2X/DAY
     Route: 048
     Dates: start: 20080206, end: 201202
  6. CORTRIL [Concomitant]
     Active Substance: HYDROCORTISONE
     Indication: ADRENAL INSUFFICIENCY
     Dosage: 30 MG, DAILY (20 MG IN THE MORNING AND 10 MG IN THE EVENING)
     Route: 048
     Dates: start: 19960413, end: 19960723
  7. GENOTROPIN GOQUICK [Suspect]
     Active Substance: SOMATROPIN
     Indication: GROWTH HORMONE DEFICIENCY
     Dosage: 0.4 MG, UNK
     Route: 058
     Dates: start: 20101027, end: 20110104
  8. CORTRIL [Concomitant]
     Active Substance: HYDROCORTISONE
     Dosage: 20 MG, 1X/DAY
     Route: 048
     Dates: start: 19960724, end: 19970105
  9. THYRADIN [Concomitant]
     Active Substance: LEVOTHYROXINE
     Dosage: 75 ?G, 1X/DAY
     Route: 048
     Dates: start: 20090128
  10. CORTRIL [Concomitant]
     Active Substance: HYDROCORTISONE
     Dosage: 10 MG, 1X/DAY
     Route: 048
     Dates: start: 19970106
  11. LUTORAL [Suspect]
     Active Substance: CHLORMADINONE ACETATE\MESTRANOL
     Indication: AMENORRHOEA
     Dosage: 2 MG, 2X/DAY
     Route: 048
     Dates: start: 20080206, end: 201202
  12. THYRADIN [Concomitant]
     Active Substance: LEVOTHYROXINE
     Indication: SECONDARY HYPOTHYROIDISM
     Dosage: 100 ?G, 1X/DAY
     Route: 048
     Dates: start: 19960413, end: 19960903
  13. ALEVIATIN [Concomitant]
     Active Substance: PHENYTOIN SODIUM
     Indication: EPILEPSY
     Dosage: 100 MG, 2X/DAY
     Route: 048
     Dates: start: 19960413, end: 19970325

REACTIONS (2)
  - Brain neoplasm [Not Recovered/Not Resolved]
  - Disease progression [Not Recovered/Not Resolved]

NARRATIVE: CASE EVENT DATE: 20140731
